FAERS Safety Report 8555149-9 (Version None)
Quarter: 2012Q3

REPORT INFORMATION
  Report Type: 
  Country: None (occurrence: None)
  Receive Date: 20120731
  Receipt Date: 20120721
  Transmission Date: 20120928
  Serious: Yes (Hospitalization)
  Sender: FDA-Public Use
  Company Number: DE-FRI-1000036715

PATIENT
  Sex: Female

DRUGS (5)
  1. FRUBIASE [Concomitant]
  2. AT 10 [Concomitant]
  3. ANTIHYPERTENSIVES [Concomitant]
  4. ANTI-ASTHMATICS [Concomitant]
  5. MEMANTINE HCL [Suspect]
     Indication: DEMENTIA ALZHEIMER'S TYPE
     Dates: start: 20111101

REACTIONS (4)
  - BLOOD CREATININE INCREASED [None]
  - HALLUCINATION [None]
  - HYPERCALCAEMIA [None]
  - CONFUSIONAL STATE [None]
